FAERS Safety Report 6035503-X (Version None)
Quarter: 2009Q1

REPORT INFORMATION
  Report Type: 
  Country: None (occurrence: None)
  Receive Date: 20090113
  Receipt Date: 20090102
  Transmission Date: 20090719
  Serious: Yes (Other)
  Sender: FDA-Public Use
  Company Number: AU-AVENTIS-200910044EU

PATIENT
  Sex: Female

DRUGS (2)
  1. LASIX [Suspect]
     Route: 048
     Dates: start: 20000101
  2. LASIX [Suspect]
     Route: 048
     Dates: start: 20081101

REACTIONS (3)
  - CORONARY ARTERY BYPASS [None]
  - DRY MOUTH [None]
  - PRURITUS [None]
